FAERS Safety Report 5873025-7 (Version None)
Quarter: 2008Q3

REPORT INFORMATION
  Report Type: 
  Country: None (occurrence: None)
  Receive Date: 20080903
  Receipt Date: 20080820
  Transmission Date: 20090109
  Serious: Yes (Hospitalization)
  Sender: FDA-Public Use
  Company Number: 2008BI021444

PATIENT
  Age: 19 Year
  Sex: Female

DRUGS (1)
  1. AVONEX [Suspect]
     Indication: MULTIPLE SCLEROSIS
     Dosage: IM
     Route: 030

REACTIONS (6)
  - CONDITION AGGRAVATED [None]
  - KIDNEY INFECTION [None]
  - MULTIPLE SCLEROSIS [None]
  - NASOPHARYNGITIS [None]
  - PNEUMONIA [None]
  - URINARY TRACT INFECTION [None]
